FAERS Safety Report 25003465 (Version 1)
Quarter: 2025Q1

REPORT INFORMATION
  Report Type: Spontaneous
  Country: US (occurrence: US)
  Receive Date: 20250224
  Receipt Date: 20250224
  Transmission Date: 20250408
  Serious: No
  Sender: GLAXOSMITHKLINE
  Company Number: US-GSK-US2025019514

PATIENT
  Age: 68 Year
  Sex: Male
  Weight: 95.25 kg

DRUGS (2)
  1. NUCALA [Suspect]
     Active Substance: MEPOLIZUMAB
     Indication: Asthma
     Dosage: 100 MG/ML, WE
     Route: 058
     Dates: start: 20250213
  2. NUCALA [Suspect]
     Active Substance: MEPOLIZUMAB
     Indication: Chronic sinusitis

REACTIONS (7)
  - Exposure via skin contact [Unknown]
  - Accidental exposure to product [Unknown]
  - Device use error [Unknown]
  - Accidental underdose [Unknown]
  - Product use in unapproved indication [Unknown]
  - Product use issue [Unknown]
  - Product complaint [Unknown]

NARRATIVE: CASE EVENT DATE: 20250213
